FAERS Safety Report 14402095 (Version 4)
Quarter: 2021Q2

REPORT INFORMATION
  Report Type: Other
  Country: IN (occurrence: IN)
  Receive Date: 20180117
  Receipt Date: 20210406
  Transmission Date: 20210716
  Serious: Yes (Hospitalization)
  Sender: FDA-Public Use
  Company Number: IN-ROCHE-2053653

PATIENT
  Age: 72 Year
  Sex: Male

DRUGS (6)
  1. POVIDONE?IODINE. [Concomitant]
     Active Substance: POVIDONE-IODINE
  2. BEVACIZUMAB. [Suspect]
     Active Substance: BEVACIZUMAB
     Indication: RETINAL VEIN OCCLUSION
     Route: 050
  3. CIPROFLOXACIN. [Concomitant]
     Active Substance: CIPROFLOXACIN
     Route: 048
  4. PROPARACAINE HYDROCHLORIDE. [Concomitant]
     Active Substance: PROPARACAINE HYDROCHLORIDE
  5. DIAMOX SEQUELS [Concomitant]
     Active Substance: ACETAZOLAMIDE
     Route: 048
  6. ATROPINE SULPHATE [Concomitant]
     Active Substance: ATROPINE SULFATE

REACTIONS (5)
  - Transmission of an infectious agent via product [Unknown]
  - Endophthalmitis [Recovering/Resolving]
  - Glaucoma [Unknown]
  - Off label use [Unknown]
  - Product contamination microbial [Unknown]
